FAERS Safety Report 14357001 (Version 1)
Quarter: 2018Q1

REPORT INFORMATION
  Report Type: Spontaneous
  Country: FR (occurrence: FR)
  Receive Date: 20180105
  Receipt Date: 20180105
  Transmission Date: 20180509
  Serious: Yes (Hospitalization)
  Sender: FDA-Public Use
  Company Number: FR-PFIZER INC-2018004682

PATIENT
  Age: 21 Year
  Sex: Female
  Weight: 48 kg

DRUGS (2)
  1. STRESAM [Suspect]
     Active Substance: ETIFOXINE
     Indication: ANXIETY DISORDER
     Dosage: TAKEN 3 TIMES: ON 4,5 AND 06JUN2016
     Route: 048
     Dates: start: 20160604, end: 20160612
  2. EFFEXOR LP [Suspect]
     Active Substance: VENLAFAXINE HYDROCHLORIDE
     Indication: ANXIETY DISORDER
     Dosage: TAKEN 3 TIMES: ON 4,5 AND 06JUN2016
     Route: 048
     Dates: start: 20160604, end: 20160612

REACTIONS (1)
  - Rash maculo-papular [Recovered/Resolved]

NARRATIVE: CASE EVENT DATE: 20170612
